FAERS Safety Report 23172414 (Version 1)
Quarter: 2023Q4

REPORT INFORMATION
  Report Type: Spontaneous
  Country: CN (occurrence: CN)
  Receive Date: 20231110
  Receipt Date: 20231110
  Transmission Date: 20240110
  Serious: Yes (Hospitalization, Other)
  Sender: FDA-Public Use
  Company Number: None

PATIENT
  Age: 53 Year
  Sex: Female
  Weight: 63 kg

DRUGS (11)
  1. IFOSFAMIDE [Suspect]
     Active Substance: IFOSFAMIDE
     Indication: Bone cancer
     Dosage: 3.6 G, ONE TIME IN ONE DAY, D1-3, AS A PART OF MAID REGIMEN
     Route: 041
     Dates: start: 20200201, end: 20200203
  2. IFOSFAMIDE [Suspect]
     Active Substance: IFOSFAMIDE
     Indication: Malignant fibrous histiocytoma
  3. IFOSFAMIDE [Suspect]
     Active Substance: IFOSFAMIDE
     Indication: Chemotherapy
  4. MESNA [Suspect]
     Active Substance: MESNA
     Indication: Bone cancer
     Dosage: 0.72 (UNIT NOT PROVIDED), ONE TIME IN ONE DAY, D1-3, AS A PART OF MAID REGIMEN
     Route: 065
     Dates: start: 20200201, end: 20200203
  5. MESNA [Suspect]
     Active Substance: MESNA
     Indication: Malignant fibrous histiocytoma
  6. DACARBAZINE [Suspect]
     Active Substance: DACARBAZINE
     Indication: Bone cancer
     Dosage: 435 MG, ONE TIME IN ONE DAY, D1-3, AS A PART OF MAID REGIMEN
     Route: 041
     Dates: start: 20200201, end: 20200203
  7. DACARBAZINE [Suspect]
     Active Substance: DACARBAZINE
     Indication: Malignant fibrous histiocytoma
  8. DACARBAZINE [Suspect]
     Active Substance: DACARBAZINE
     Indication: Chemotherapy
  9. DOXORUBICIN HYDROCHLORIDE [Suspect]
     Active Substance: DOXORUBICIN HYDROCHLORIDE
     Indication: Bone cancer
     Dosage: 20 MG, ONE TIME IN ONE DAY, D1-3, AS A PART OF MAID REGIMEN
     Route: 041
     Dates: start: 20200201, end: 20200203
  10. DOXORUBICIN HYDROCHLORIDE [Suspect]
     Active Substance: DOXORUBICIN HYDROCHLORIDE
     Indication: Malignant fibrous histiocytoma
  11. DOXORUBICIN HYDROCHLORIDE [Suspect]
     Active Substance: DOXORUBICIN HYDROCHLORIDE
     Indication: Chemotherapy

REACTIONS (1)
  - Myelosuppression [Recovering/Resolving]

NARRATIVE: CASE EVENT DATE: 20200209
